FAERS Safety Report 19372060 (Version 1)
Quarter: 2021Q2

REPORT INFORMATION
  Report Type: Spontaneous
  Country: US (occurrence: US)
  Receive Date: 20210603
  Receipt Date: 20210603
  Transmission Date: 20210717
  Serious: Yes (Death)
  Sender: FDA-Public Use
  Company Number: None

PATIENT
  Age: 80 Year
  Sex: Male

DRUGS (1)
  1. TENOFOVIR TAB 300MG [Suspect]
     Active Substance: TENOFOVIR
     Route: 048
     Dates: start: 202006, end: 202105

REACTIONS (1)
  - Death [None]

NARRATIVE: CASE EVENT DATE: 20210516
